FAERS Safety Report 9682745 (Version 1)
Quarter: 2013Q4

REPORT INFORMATION
  Report Type: Spontaneous
  Country: US (occurrence: US)
  Receive Date: 20131112
  Receipt Date: 20131112
  Transmission Date: 20140711
  Serious: No
  Sender: FDA-Public Use
  Company Number: US-009507513-1311USA004260

PATIENT
  Sex: Male

DRUGS (1)
  1. VICTRELIS [Suspect]
     Dosage: UNK
     Dates: start: 201307

REACTIONS (3)
  - Toothache [Unknown]
  - Limb discomfort [Not Recovered/Not Resolved]
  - Musculoskeletal discomfort [Not Recovered/Not Resolved]
